FAERS Safety Report 12466247 (Version 1)
Quarter: 2016Q2

REPORT INFORMATION
  Report Type: Spontaneous
  Country: US (occurrence: US)
  Receive Date: 20160614
  Receipt Date: 20160614
  Transmission Date: 20160815
  Serious: Yes (Hospitalization, Other)
  Sender: FDA-Public Use
  Company Number: US-IMPAX LABORATORIES, INC-2016-IPXL-00602

PATIENT
  Age: 15 Year
  Sex: Male

DRUGS (2)
  1. ALPRAZOLAM ER [Suspect]
     Active Substance: ALPRAZOLAM
     Indication: PRODUCT USED FOR UNKNOWN INDICATION
     Dosage: UNK
     Route: 048
  2. HEROIN [Suspect]
     Active Substance: DIACETYLMORPHINE
     Indication: PRODUCT USED FOR UNKNOWN INDICATION
     Dosage: UNK
     Route: 045

REACTIONS (8)
  - Cardiomyopathy [Recovered/Resolved]
  - Miosis [Unknown]
  - Bundle branch block right [Unknown]
  - Electrocardiogram abnormal [Unknown]
  - Mental impairment [Unknown]
  - Overdose [Unknown]
  - Deafness [Recovered/Resolved]
  - Unresponsive to stimuli [Unknown]
